FAERS Safety Report 15593833 (Version 1)
Quarter: 2018Q4

REPORT INFORMATION
  Report Type: Spontaneous
  Country: GR (occurrence: GR)
  Receive Date: 20181106
  Receipt Date: 20181106
  Transmission Date: 20190205
  Serious: Yes (Hospitalization, Other)
  Sender: FDA-Public Use
  Company Number: GR-MYLANLABS-2018M1083627

PATIENT
  Age: 65 Year
  Sex: Female

DRUGS (6)
  1. RYTMONORM 150 MG [Suspect]
     Active Substance: PROPAFENONE
     Dosage: 2 DF, UNK (150MGX2)
     Dates: start: 20181030
  2. PREZOLON [Concomitant]
     Active Substance: PREDNISOLONE
     Indication: RHEUMATOID ARTHRITIS
     Dosage: UNK
  3. THYROSTAT                          /00010201/ [Concomitant]
     Indication: HYPERTHYROIDISM
     Dosage: UNK
  4. ELIQUIS [Concomitant]
     Active Substance: APIXABAN
     Indication: ATRIAL FIBRILLATION
     Dosage: UNK
  5. RYTMONORM 150 MG [Suspect]
     Active Substance: PROPAFENONE
     Indication: ATRIAL FIBRILLATION
     Dosage: 0.5 DF, TID (1/2 TABLET TID)
  6. MICARDIS [Concomitant]
     Active Substance: TELMISARTAN
     Indication: HYPERTENSION
     Dosage: 80 MG, UNK

REACTIONS (2)
  - Bradycardia [Recovered/Resolved]
  - Medication error [Unknown]

NARRATIVE: CASE EVENT DATE: 20181030
